FAERS Safety Report 14670501 (Version 2)
Quarter: 2018Q3

REPORT INFORMATION
  Report Type: Spontaneous
  Country: IT (occurrence: IT)
  Receive Date: 20180322
  Receipt Date: 20180705
  Transmission Date: 20181010
  Serious: Yes (Hospitalization)
  Sender: FDA-Public Use
  Company Number: IT-TEVA-2018-IT-870301

PATIENT
  Age: 82 Year
  Sex: Male

DRUGS (9)
  1. CITALOPRAM [Suspect]
     Active Substance: CITALOPRAM HYDROBROMIDE
     Dosage: 10 MILLIGRAM DAILY;
     Route: 048
  2. DEURSIL [Concomitant]
     Active Substance: URSODIOL
     Dosage: 300 MILLIGRAM DAILY;
     Route: 048
  3. LIXIANA 30 MG FILM?COATED TABLETS [Suspect]
     Active Substance: EDOXABAN TOSYLATE
     Indication: ATRIAL FIBRILLATION
     Route: 048
  4. ATORVASTATIN [Concomitant]
     Active Substance: ATORVASTATIN
     Dosage: 10 MILLIGRAM DAILY;
     Route: 048
  5. TAMSULOSIN HYDROCHLORIDE. [Concomitant]
     Active Substance: TAMSULOSIN HYDROCHLORIDE
     Dosage: .4 MILLIGRAM DAILY;
     Route: 048
  6. BISOPROLOL FUMARATE. [Concomitant]
     Active Substance: BISOPROLOL FUMARATE
     Dosage: 5 MILLIGRAM DAILY;
     Route: 048
  7. METFORMIN [Concomitant]
     Active Substance: METFORMIN HYDROCHLORIDE
     Dosage: 1700 MILLIGRAM DAILY;
     Route: 048
  8. LASIX [Concomitant]
     Active Substance: FUROSEMIDE
     Dosage: 25 MILLIGRAM DAILY;
     Route: 048
  9. AVODART [Concomitant]
     Active Substance: DUTASTERIDE
     Dosage: .5 MILLIGRAM DAILY;
     Route: 048

REACTIONS (4)
  - Head injury [Recovering/Resolving]
  - Cerebral haemorrhage [Recovering/Resolving]
  - Rib fracture [Recovering/Resolving]
  - Haematoma [Recovering/Resolving]
